FAERS Safety Report 23789235 (Version 1)
Quarter: 2024Q2

REPORT INFORMATION
  Report Type: Spontaneous
  Country: US (occurrence: None)
  Receive Date: 20240425
  Receipt Date: 20240425
  Transmission Date: 20240716
  Serious: Yes (Other)
  Sender: FDA-Public Use
  Company Number: None

PATIENT
  Age: 9 Year
  Sex: Female
  Weight: 23.95 kg

DRUGS (8)
  1. LUPRON DEPOT-PED [Suspect]
     Active Substance: LEUPROLIDE ACETATE
     Indication: Precocious puberty
     Dosage: 15 MG ONCE A MONTH INTRAMUSCULAR ?
     Route: 030
     Dates: start: 20230607, end: 20231211
  2. TRIAMCINOLONE ACETONIDE [Concomitant]
     Active Substance: TRIAMCINOLONE ACETONIDE
  3. VITAMINS [Concomitant]
     Active Substance: VITAMINS
  4. MELATONIN [Concomitant]
     Active Substance: MELATONIN
  5. valtco nasal cpray [Concomitant]
  6. ZONISAMIDE [Concomitant]
     Active Substance: ZONISAMIDE
  7. ONDANSETRON [Concomitant]
     Active Substance: ONDANSETRON
  8. JORNAY PM EXTENDED-RELEASE [Concomitant]
     Active Substance: METHYLPHENIDATE HYDROCHLORIDE

REACTIONS (4)
  - Enuresis [None]
  - Abnormal behaviour [None]
  - Feeling abnormal [None]
  - Condition aggravated [None]

NARRATIVE: CASE EVENT DATE: 20231211
